FAERS Safety Report 6016403-8 (Version None)
Quarter: 2008Q4

REPORT INFORMATION
  Report Type: 
  Country: None (occurrence: None)
  Receive Date: 20081218
  Receipt Date: 20081205
  Transmission Date: 20090506
  Serious: Yes (Death)
  Sender: FDA-Public Use
  Company Number: GXKR2008RU11650

PATIENT
  Age: 54 Year
  Sex: Male

DRUGS (4)
  1. METHYLPREDNISOLONE 4MG TAB [Suspect]
     Indication: IMMUNOSUPPRESSION
     Dosage: 20 MG,
  2. CYCLOSPORINE [Suspect]
     Indication: IMMUNOSUPPRESSION
     Dosage: 150 MG,
  3. MYCOPHENOLIC ACID [Suspect]
     Indication: IMMUNOSUPPRESSION
     Dosage: 1440 MG,
  4. CHEMOTHERAPEUTICS NOS (NO INGREDIENTS/SUBSTANCES) [Suspect]

REACTIONS (33)
  - AGRANULOCYTOSIS [None]
  - ANAEMIA [None]
  - AORTIC DILATATION [None]
  - AORTIC THROMBOSIS [None]
  - ARTERITIS [None]
  - BETA 2 MICROGLOBULIN INCREASED [None]
  - BLOOD IMMUNOGLOBULIN G INCREASED [None]
  - BONE MARROW TOXICITY [None]
  - CONTINUOUS HAEMODIAFILTRATION [None]
  - CORONARY ARTERY OCCLUSION [None]
  - DEEP VEIN THROMBOSIS [None]
  - FALL [None]
  - FUNGAL OESOPHAGITIS [None]
  - HYPERCALCAEMIA [None]
  - HYPERPROTEINAEMIA [None]
  - HYPERTROPHIC CARDIOMYOPATHY [None]
  - LEFT VENTRICULAR HYPERTROPHY [None]
  - LOSS OF CONSCIOUSNESS [None]
  - MULTIPLE MYELOMA [None]
  - OEDEMA PERIPHERAL [None]
  - PAIN IN EXTREMITY [None]
  - PERIPHERAL EMBOLISM [None]
  - PNEUMONIA [None]
  - POST PROCEDURAL COMPLICATION [None]
  - RENAL TRANSPLANT [None]
  - SEPTIC SHOCK [None]
  - SINUS TACHYCARDIA [None]
  - SYNCOPE [None]
  - THERAPEUTIC RESPONSE DECREASED [None]
  - THROMBOSIS [None]
  - TREATMENT FAILURE [None]
  - TYPE 2 DIABETES MELLITUS [None]
  - VENOUS THROMBOSIS [None]
